FAERS Safety Report 16885782 (Version 1)
Quarter: 2019Q4

REPORT INFORMATION
  Report Type: Spontaneous
  Country: US (occurrence: US)
  Receive Date: 20190809
  Receipt Date: 20190809
  Transmission Date: 20200122
  Serious: Yes (Life-Threatening, Hospitalization)
  Sender: FDA-Public Use
  Company Number: None

PATIENT
  Age: 52 Year
  Sex: Female
  Weight: 53.9 kg

DRUGS (5)
  1. AMOXIL [Concomitant]
     Active Substance: AMOXICILLIN
  2. AIMOVIG [Suspect]
     Active Substance: ERENUMAB-AOOE
     Indication: MIGRAINE
     Route: 058
     Dates: start: 20181024, end: 201906
  3. FLUCONAZOLE. [Concomitant]
     Active Substance: FLUCONAZOLE
  4. RIZATRIPTAN. [Concomitant]
     Active Substance: RIZATRIPTAN
  5. MOTRIN [Concomitant]
     Active Substance: IBUPROFEN

REACTIONS (2)
  - Acute myocardial infarction [None]
  - Chest pain [None]

NARRATIVE: CASE EVENT DATE: 20190717
